FAERS Safety Report 25747633 (Version 1)
Quarter: 2025Q3

REPORT INFORMATION
  Report Type: Spontaneous
  Country: US (occurrence: US)
  Receive Date: 20250901
  Receipt Date: 20250901
  Transmission Date: 20251020
  Serious: Yes (Hospitalization)
  Sender: DR REDDYS
  Company Number: US-DRL-USA-USA/2025/08/013088

PATIENT
  Age: 32 Year
  Sex: Female

DRUGS (4)
  1. FLUPHENAZINE [Suspect]
     Active Substance: FLUPHENAZINE
     Indication: Schizoaffective disorder
  2. FLUPHENAZINE [Suspect]
     Active Substance: FLUPHENAZINE
     Dosage: DUAL ANTIPSYCHOTIC THERAPY WITH RISPERIDONE
  3. FLUPHENAZINE [Suspect]
     Active Substance: FLUPHENAZINE
     Dosage: FLUPHENAZINE MONOTHERAPY
  4. RISPERIDONE [Suspect]
     Active Substance: RISPERIDONE
     Indication: Schizoaffective disorder

REACTIONS (3)
  - Delusion [Recovered/Resolved]
  - Hyperprolactinaemia [Recovering/Resolving]
  - Drug ineffective [Unknown]
